FAERS Safety Report 20510631 (Version 1)
Quarter: 2022Q1

REPORT INFORMATION
  Report Type: Spontaneous
  Country: US (occurrence: US)
  Receive Date: 20220224
  Receipt Date: 20220224
  Transmission Date: 20220423
  Serious: Yes (Other)
  Sender: FDA-Public Use
  Company Number: US-LUPIN PHARMACEUTICALS INC.-2022-02315

PATIENT
  Age: 81 Year
  Sex: Female

DRUGS (3)
  1. CALCIPOTRIENE [Suspect]
     Active Substance: CALCIPOTRIENE
     Indication: Morphoea
     Dosage: UNK UNK, BID (OINTMENT)
     Route: 061
  2. TRIAMCINOLONE ACETONIDE [Suspect]
     Active Substance: TRIAMCINOLONE ACETONIDE
     Indication: Morphoea
     Dosage: UNK UNK, BID
     Route: 061
  3. APREMILAST [Concomitant]
     Active Substance: APREMILAST
     Indication: Morphoea
     Dosage: 30 MILLIGRAM, BID
     Route: 048

REACTIONS (2)
  - Drug ineffective [Unknown]
  - Off label use [Unknown]
